FAERS Safety Report 7169442-8 (Version None)
Quarter: 2010Q4

REPORT INFORMATION
  Report Type: 
  Country: None (occurrence: None)
  Receive Date: 20101217
  Receipt Date: 20101206
  Transmission Date: 20110411
  Serious: Yes (Life-Threatening, Hospitalization, Other)
  Sender: FDA-Public Use
  Company Number: IT-BIOGENIDEC-2010BI020794

PATIENT
  Age: 48 Year
  Sex: Female

DRUGS (6)
  1. TYSABRI [Suspect]
     Indication: RELAPSING-REMITTING MULTIPLE SCLEROSIS
     Route: 042
     Dates: start: 20100505, end: 20100505
  2. TYSABRI [Suspect]
     Route: 042
     Dates: start: 20100702
  3. TYSABRI [Suspect]
     Route: 042
     Dates: end: 20100823
  4. TYSABRI [Suspect]
     Dates: start: 20101203
  5. PAROXETINE [Concomitant]
     Dates: start: 20100301
  6. GABAPENTIN [Concomitant]
     Dates: start: 20100301

REACTIONS (2)
  - EPILEPSY [None]
  - HEMIPARESIS [None]
